FAERS Safety Report 20775523 (Version 5)
Quarter: 2023Q4

REPORT INFORMATION
  Report Type: Report from Study
  Country: US (occurrence: US)
  Receive Date: 20220502
  Receipt Date: 20231004
  Transmission Date: 20240109
  Serious: Yes (Death, Other)
  Sender: FDA-Public Use
  Company Number: US-Ipsen Biopharmaceuticals, Inc.-2022-12112

PATIENT
  Age: 53 Year
  Sex: Female
  Weight: 49.89 kg

DRUGS (4)
  1. SOMATULINE DEPOT [Suspect]
     Active Substance: LANREOTIDE ACETATE
     Indication: Neuroendocrine tumour
     Dosage: 120MG/ 0.5ML
     Route: 058
     Dates: start: 202010
  2. SOMATULINE DEPOT [Suspect]
     Active Substance: LANREOTIDE ACETATE
     Indication: Gastroenteropancreatic neuroendocrine tumour disease
  3. NEULASTA [Concomitant]
     Active Substance: PEGFILGRASTIM
  4. OCTREOTIDE [Concomitant]
     Active Substance: OCTREOTIDE

REACTIONS (1)
  - Malignant neoplasm progression [Fatal]
